FAERS Safety Report 5658034-5 (Version None)
Quarter: 2008Q1

REPORT INFORMATION
  Report Type: 
  Country: None (occurrence: None)
  Receive Date: 20080310
  Receipt Date: 20070205
  Transmission Date: 20080703
  Serious: No
  Sender: FDA-Public Use
  Company Number: US-BAYER-200614932BCC

PATIENT
  Age: 82 Year
  Sex: Female
  Weight: 59 kg

DRUGS (9)
  1. ALEVE [Suspect]
     Indication: BACK PAIN
     Dosage: TOTAL DAILY DOSE: 440 MG  UNIT DOSE: 220 MG
     Route: 048
     Dates: start: 20061101
  2. ASPIRIN [Suspect]
     Indication: PROPHYLAXIS
     Dosage: TOTAL DAILY DOSE: 81 MG  UNIT DOSE: 81 MG
     Route: 048
     Dates: start: 20060101
  3. DIOVAN [Concomitant]
     Route: 048
  4. TERAZOSIN [Concomitant]
     Route: 048
  5. ATENOLOL [Concomitant]
     Route: 048
  6. DILTIAZEM [Concomitant]
     Route: 048
  7. CENTRUM SILVER [Concomitant]
  8. ALPRAZOLAM [Concomitant]
     Route: 048
  9. BUTALBITAL [Concomitant]

REACTIONS (2)
  - DRY MOUTH [None]
  - NOCTURIA [None]
